FAERS Safety Report 8457308-2 (Version None)
Quarter: 2012Q2

REPORT INFORMATION
  Report Type: 
  Country: None (occurrence: None)
  Receive Date: 20120621
  Receipt Date: 20120618
  Transmission Date: 20120825
  Serious: Yes (Other)
  Sender: FDA-Public Use
  Company Number: US-PFIZER INC-2012146976

PATIENT
  Sex: Female
  Weight: 86.168 kg

DRUGS (2)
  1. LEVOTHYROXINE [Concomitant]
     Indication: THYROID DISORDER
     Dosage: UNK
  2. LYRICA [Suspect]
     Indication: FIBROMYALGIA
     Dosage: 150 MG, 2X/DAY
     Route: 048
     Dates: start: 20120401, end: 20120601

REACTIONS (7)
  - BLOOD PRESSURE INCREASED [None]
  - CHEST PAIN [None]
  - WEIGHT INCREASED [None]
  - DIARRHOEA [None]
  - ABDOMINAL PAIN [None]
  - ABDOMINAL DISTENSION [None]
  - NAUSEA [None]
